FAERS Safety Report 13695060 (Version 2)
Quarter: 2018Q1

REPORT INFORMATION
  Report Type: Report from Study
  Country: US (occurrence: US)
  Receive Date: 20170627
  Receipt Date: 20180328
  Transmission Date: 20180508
  Serious: Yes (Death, Hospitalization)
  Sender: FDA-Public Use
  Company Number: US-JNJFOC-20170623859

PATIENT
  Age: 84 Year
  Sex: Male

DRUGS (12)
  1. CHONDROITIN SULFATE [Concomitant]
     Active Substance: CHONDROITIN SULFATE (BOVINE)
  2. PLAVIX [Concomitant]
     Active Substance: CLOPIDOGREL BISULFATE
  3. SOTALOL. [Concomitant]
     Active Substance: SOTALOL
  4. LIPITOR [Concomitant]
     Active Substance: ATORVASTATIN CALCIUM
  5. XARELTO [Concomitant]
     Active Substance: RIVAROXABAN
  6. GLUCOSAMINE [Concomitant]
     Active Substance: GLUCOSAMINE
  7. PANTOPRAZOLE [Concomitant]
     Active Substance: PANTOPRAZOLE
  8. IMBRUVICA [Suspect]
     Active Substance: IBRUTINIB
     Indication: WALDENSTROM^S MACROGLOBULINAEMIA
     Route: 048
  9. DIGOXIN. [Concomitant]
     Active Substance: DIGOXIN
  10. IMBRUVICA [Suspect]
     Active Substance: IBRUTINIB
     Indication: WALDENSTROM^S MACROGLOBULINAEMIA
     Route: 048
     Dates: start: 20150428
  11. FINASTERIDE. [Concomitant]
     Active Substance: FINASTERIDE
  12. VITAMIN D3 [Concomitant]
     Active Substance: CHOLECALCIFEROL

REACTIONS (6)
  - Myocardial infarction [Unknown]
  - Inappropriate schedule of drug administration [Unknown]
  - Pneumonia [Unknown]
  - Off label use [Unknown]
  - Death [Fatal]
  - Nasopharyngitis [Unknown]

NARRATIVE: CASE EVENT DATE: 20150428
